FAERS Safety Report 8380801-8 (Version None)
Quarter: 2012Q2

REPORT INFORMATION
  Report Type: 
  Country: None (occurrence: None)
  Receive Date: 20120523
  Receipt Date: 20120514
  Transmission Date: 20120825
  Serious: Yes (Other)
  Sender: FDA-Public Use
  Company Number: JP-TEVA-2011004088

PATIENT
  Sex: Female
  Weight: 45.7 kg

DRUGS (6)
  1. BROTIZOLAM [Concomitant]
  2. BENDAMUSTINE HYDROCHLORIDE [Suspect]
     Indication: B-CELL LYMPHOMA
     Dosage: 90 MG/M2;
     Route: 042
     Dates: start: 20110120, end: 20110121
  3. BENDAMUSTINE HYDROCHLORIDE [Suspect]
     Dosage: 90 MG/M2;
     Route: 042
     Dates: start: 20110527, end: 20110528
  4. BENDAMUSTINE HYDROCHLORIDE [Suspect]
     Dosage: 90 MG/M2;
     Route: 042
     Dates: start: 20110713, end: 20110714
  5. BENDAMUSTINE HYDROCHLORIDE [Suspect]
     Dosage: 90 MG/M2;
     Route: 042
     Dates: start: 20110413, end: 20110414
  6. BENDAMUSTINE HYDROCHLORIDE [Suspect]
     Dosage: 90 MG/M2;
     Route: 042
     Dates: start: 20110223, end: 20110224

REACTIONS (5)
  - FEBRILE NEUTROPENIA [None]
  - LYMPHOCYTE COUNT DECREASED [None]
  - VASCULITIS [None]
  - NEUTROPHIL COUNT DECREASED [None]
  - WHITE BLOOD CELL COUNT DECREASED [None]
